FAERS Safety Report 9375753 (Version 2)
Quarter: 2013Q3

REPORT INFORMATION
  Report Type: Report from Study
  Country: DE (occurrence: DE)
  Receive Date: 20130628
  Receipt Date: 20130719
  Transmission Date: 20140515
  Serious: Yes (Hospitalization)
  Sender: FDA-Public Use
  Company Number: DE-BAXTER-2013BAX019552

PATIENT
  Age: 54 Year
  Sex: Female
  Weight: 58 kg

DRUGS (16)
  1. ENDOXAN 1G [Suspect]
     Indication: BREAST CANCER
     Route: 042
     Dates: start: 20130515
  2. ENDOXAN 1G [Suspect]
     Route: 042
     Dates: start: 20130605
  3. TRASTUZUMAB [Suspect]
     Indication: BREAST CANCER
     Route: 042
     Dates: start: 20130220
  4. TRASTUZUMAB [Suspect]
     Route: 042
     Dates: start: 20130515
  5. TRASTUZUMAB [Suspect]
     Route: 042
     Dates: start: 20130605
  6. TRASTUZUMAB [Suspect]
     Route: 042
     Dates: start: 20130626
  7. PERTUZUMAB [Suspect]
     Indication: BREAST CANCER
     Route: 042
     Dates: start: 20130220
  8. PERTUZUMAB [Suspect]
     Route: 042
     Dates: start: 20130515
  9. PERTUZUMAB [Suspect]
     Route: 042
     Dates: start: 20130605
  10. PERTUZUMAB [Suspect]
     Route: 042
     Dates: start: 20130626
  11. PACLITAXEL [Suspect]
     Indication: BREAST CANCER
     Route: 042
     Dates: start: 20130220
  12. PACLITAXEL [Suspect]
     Route: 042
     Dates: start: 20130508
  13. EPIRUBICIN HYDROCHLORIDE [Suspect]
     Indication: BREAST CANCER
     Route: 042
     Dates: start: 20130515
  14. EPIRUBICIN HYDROCHLORIDE [Suspect]
     Route: 042
     Dates: start: 20130515
  15. EPIRUBICIN HYDROCHLORIDE [Suspect]
     Route: 042
     Dates: start: 20130605
  16. EPIRUBICIN HYDROCHLORIDE [Suspect]
     Route: 042
     Dates: start: 20130626

REACTIONS (3)
  - Vomiting [Not Recovered/Not Resolved]
  - Dehydration [Not Recovered/Not Resolved]
  - Nausea [Recovered/Resolved]
